FAERS Safety Report 7609109-2 (Version None)
Quarter: 2011Q3

REPORT INFORMATION
  Report Type: 
  Country: None (occurrence: None)
  Receive Date: 20110714
  Receipt Date: 20110704
  Transmission Date: 20111222
  Serious: Yes (Other)
  Sender: FDA-Public Use
  Company Number: JP-JNJFOC-20110306325

PATIENT
  Sex: Male
  Weight: 42 kg

DRUGS (8)
  1. REMICADE [Suspect]
     Dosage: 3RD DOSE
     Route: 042
     Dates: start: 20110307
  2. ELENTAL [Concomitant]
     Route: 048
     Dates: start: 20110104
  3. PREDNISOLONE [Concomitant]
     Dates: start: 20110305, end: 20110308
  4. REMICADE [Suspect]
     Indication: CROHN'S DISEASE
     Dosage: 2ND DOSE
     Route: 042
     Dates: start: 20110207
  5. PENTASA [Concomitant]
     Route: 048
     Dates: start: 20110106
  6. RABEPRAZOLE SODIUM [Concomitant]
     Route: 048
     Dates: start: 20110219
  7. AZATHIOPRINE SODIUM [Concomitant]
     Route: 048
     Dates: start: 20110216
  8. REMICADE [Suspect]
     Dosage: 1ST DOSE
     Route: 042
     Dates: start: 20110124

REACTIONS (5)
  - LIVER FUNCTION TEST ABNORMAL [None]
  - MYALGIA [None]
  - RASH [None]
  - BLOOD CREATINE PHOSPHOKINASE INCREASED [None]
  - INFUSION RELATED REACTION [None]
